FAERS Safety Report 8963017 (Version 1)
Quarter: 2012Q4

REPORT INFORMATION
  Report Type: 
  Country: US (occurrence: US)
  Receive Date: 20121213
  Receipt Date: 20121213
  Transmission Date: 20130627
  Serious: Yes (Other)
  Sender: FDA-Public Use
  Company Number: US-PFIZER INC-2012312750

PATIENT
  Age: 89 Year
  Sex: Male
  Weight: 83.9 kg

DRUGS (3)
  1. CELEBREX [Suspect]
     Indication: ARTHRITIS
     Dosage: 200 mg, 1x/day
     Route: 048
  2. MULTIVITAMINS [Concomitant]
     Dosage: UNK
  3. XALKORI [Concomitant]
     Dosage: UNK

REACTIONS (2)
  - Macular degeneration [Not Recovered/Not Resolved]
  - Body height decreased [Unknown]
